FAERS Safety Report 10357686 (Version 3)
Quarter: 2015Q2

REPORT INFORMATION
  Report Type: Spontaneous
  Country: JP (occurrence: JP)
  Receive Date: 20140801
  Receipt Date: 20150410
  Transmission Date: 20150821
  Serious: Yes (Hospitalization)
  Sender: FDA-Public Use
  Company Number: JP-BAYER-2014-111054

PATIENT
  Age: 40 Year
  Sex: Female
  Weight: 80 kg

DRUGS (6)
  1. BETAFERON [Suspect]
     Active Substance: INTERFERON BETA-1B
     Indication: MULTIPLE SCLEROSIS
     Dosage: 8 MIU, QOD
     Route: 058
     Dates: start: 20130125, end: 20140718
  2. JUVELA N [Concomitant]
     Active Substance: TOCOPHERYL NICOTINATE, D-.ALPHA.
     Indication: HYPERLIPIDAEMIA
     Dosage: DAILY DOSE 600 MG
     Route: 048
     Dates: start: 20130220
  3. DEPAKENE [Concomitant]
     Active Substance: VALPROIC ACID
     Indication: MIGRAINE
     Dosage: DAILY DOSE 400 MG
     Route: 048
     Dates: start: 20130205
  4. ALESION [Concomitant]
     Active Substance: EPINASTINE HYDROCHLORIDE
     Indication: SKIN REACTION
     Dosage: DAILY DOSE 20 MG
     Route: 048
     Dates: start: 20130218
  5. ALLEGRA [Concomitant]
     Active Substance: FEXOFENADINE HYDROCHLORIDE
     Indication: PROPHYLAXIS
     Dosage: DAILY DOSE 120 MG
     Route: 048
     Dates: start: 20130224
  6. SENNA [Concomitant]
     Active Substance: SENNA LEAF\SENNOSIDES\SENNOSIDES A AND B
     Indication: CONSTIPATION
     Dosage: DAILY DOSE 1 G
     Route: 048

REACTIONS (5)
  - Muscular weakness [Recovering/Resolving]
  - Dysstasia [Recovering/Resolving]
  - Ataxia [Recovering/Resolving]
  - Guillain-Barre syndrome [Recovering/Resolving]
  - Gait disturbance [Recovering/Resolving]

NARRATIVE: CASE EVENT DATE: 20140708
